FAERS Safety Report 20348365 (Version 1)
Quarter: 2022Q1

REPORT INFORMATION
  Report Type: Spontaneous
  Country: US (occurrence: US)
  Receive Date: 20220119
  Receipt Date: 20220119
  Transmission Date: 20220424
  Serious: No
  Sender: FDA-Public Use
  Company Number: US-MTPC-MTDA2022-0001042

PATIENT
  Sex: Female

DRUGS (3)
  1. RADICAVA [Suspect]
     Active Substance: EDARAVONE
     Indication: Amyotrophic lateral sclerosis
     Dosage: STANDARD DOSING 14 DAYS ON, 14 DAYS OFF
     Route: 065
     Dates: start: 20211208
  2. RADICAVA [Suspect]
     Active Substance: EDARAVONE
     Dosage: STANDARD DOSING 10 DAYS OUT OF 14 DAYS
     Route: 065
  3. RILUZOLE [Concomitant]
     Active Substance: RILUZOLE
     Indication: Product used for unknown indication
     Dosage: 50 MILLIGRAM, QD
     Route: 065

REACTIONS (1)
  - Gait disturbance [Not Recovered/Not Resolved]
